FAERS Safety Report 25593770 (Version 1)
Quarter: 2025Q3

REPORT INFORMATION
  Report Type: Spontaneous
  Country: US (occurrence: US)
  Receive Date: 20250723
  Receipt Date: 20250723
  Transmission Date: 20251020
  Serious: Yes (Other)
  Sender: ALEXION PHARMACEUTICALS
  Company Number: US-ASTRAZENECA-202507GLO012382US

PATIENT
  Age: 45 Year
  Sex: Female
  Weight: 108 kg

DRUGS (11)
  1. NEXIUM [Suspect]
     Active Substance: ESOMEPRAZOLE MAGNESIUM
  2. LOSARTAN [Concomitant]
     Active Substance: LOSARTAN
  3. TYLENOL [Concomitant]
     Active Substance: ACETAMINOPHEN
  4. LOPRESSOR [Concomitant]
     Active Substance: METOPROLOL TARTRATE
  5. DILTIAZEM [Concomitant]
     Active Substance: DILTIAZEM
  6. BENADRYL [Concomitant]
     Active Substance: DIPHENHYDRAMINE HYDROCHLORIDE
  7. IBUPROFEN [Concomitant]
     Active Substance: IBUPROFEN
  8. FLEXERIL [Concomitant]
     Active Substance: CYCLOBENZAPRINE HYDROCHLORIDE
  9. CEPHALEXIN [Concomitant]
     Active Substance: CEPHALEXIN
  10. SIMVASTATIN [Concomitant]
     Active Substance: SIMVASTATIN
  11. ENOXAPARIN [Concomitant]
     Active Substance: ENOXAPARIN

REACTIONS (1)
  - Gastric cancer [Unknown]
